FAERS Safety Report 8038014-5 (Version None)
Quarter: 2012Q1

REPORT INFORMATION
  Report Type: 
  Country: None (occurrence: None)
  Receive Date: 20120111
  Receipt Date: 20120110
  Transmission Date: 20120608
  Serious: Yes (Hospitalization)
  Sender: FDA-Public Use
  Company Number: GB-ROCHE-1028538

PATIENT
  Age: 66 Year
  Sex: Female

DRUGS (6)
  1. BOCEPREVIR [Suspect]
     Indication: HEPATITIS C
     Dates: start: 20111004
  2. RIBAVIRIN [Suspect]
     Indication: PRODUCT USED FOR UNKNOWN INDICATION
     Dates: start: 20111004
  3. INTERFERON ALFA-2A [Suspect]
     Indication: HEPATIC CIRRHOSIS
  4. BOCEPREVIR [Suspect]
     Indication: HEPATIC CIRRHOSIS
  5. AUGMENTIN '125' [Concomitant]
     Indication: PRODUCT USED FOR UNKNOWN INDICATION
     Route: 042
  6. INTERFERON ALFA-2A [Suspect]
     Indication: HEPATITIS C
     Route: 058
     Dates: start: 20111004

REACTIONS (6)
  - ESCHERICHIA INFECTION [None]
  - WHITE BLOOD CELL COUNT DECREASED [None]
  - URINARY TRACT INFECTION [None]
  - NEUTROPENIA [None]
  - PYREXIA [None]
  - BACTERAEMIA [None]
